FAERS Safety Report 6091048-2 (Version None)
Quarter: 2009Q1

REPORT INFORMATION
  Report Type: 
  Country: None (occurrence: None)
  Receive Date: 20090219
  Receipt Date: 20090219
  Transmission Date: 20090719
  Serious: No
  Sender: FDA-Public Use
  Company Number: None

PATIENT
  Sex: Female
  Weight: 54.4316 kg

DRUGS (6)
  1. ALENDRONATE SODIUM [Suspect]
     Indication: OSTEOPENIA
     Dosage: 1 TABLET WEEKLY BY MOUTH
     Route: 048
     Dates: start: 20081114, end: 20090114
  2. LISINOPRIL [Concomitant]
  3. PREMARIN [Concomitant]
  4. MULTI-VITAMIN [Concomitant]
  5. FISH OIL [Concomitant]
  6. CALCIUM WITH D [Concomitant]

REACTIONS (5)
  - COUGH [None]
  - LIP SWELLING [None]
  - OROPHARYNGEAL PAIN [None]
  - SWELLING FACE [None]
  - SWOLLEN TONGUE [None]
